FAERS Safety Report 21494804 (Version 3)
Quarter: 2023Q1

REPORT INFORMATION
  Report Type: Spontaneous
  Country: US (occurrence: US)
  Receive Date: 20221021
  Receipt Date: 20230317
  Transmission Date: 20230418
  Serious: Yes (Other)
  Sender: FDA-Public Use
  Company Number: US-CELLTRION INC.-2022US008612

PATIENT

DRUGS (2)
  1. INFLECTRA [Suspect]
     Active Substance: INFLIXIMAB-DYYB
     Indication: Product used for unknown indication
     Dosage: DATE STARTED: FEW YEARS
  2. INFLECTRA [Suspect]
     Active Substance: INFLIXIMAB-DYYB
     Dosage: 500 MILLIGRAM, MAINTENANCE DOSAGE EVERY 8 WEEKS

REACTIONS (4)
  - Inflammatory bowel disease [Recovered/Resolved]
  - Product distribution issue [Unknown]
  - Treatment delayed [Unknown]
  - Product dose omission issue [Recovered/Resolved]
